FAERS Safety Report 8836562 (Version 1)
Quarter: 2012Q4

REPORT INFORMATION
  Report Type: Spontaneous
  Country: AU (occurrence: None)
  Receive Date: 20121009
  Receipt Date: 20121009
  Transmission Date: 20130627
  Serious: Yes (Hospitalization, Other)
  Sender: FDA-Public Use
  Company Number: 2012SP002754

PATIENT
  Age: 52 Year
  Sex: Female

DRUGS (1)
  1. FLUOROURACIL (FLUOROURACIL) [Suspect]
     Indication: SCLERODERMA

REACTIONS (2)
  - Gastrointestinal candidiasis [None]
  - Neutropenia [None]
